FAERS Safety Report 5364915-2 (Version None)
Quarter: 2007Q2

REPORT INFORMATION
  Report Type: 
  Country: None (occurrence: None)
  Receive Date: 20070530
  Receipt Date: 20070125
  Transmission Date: 20071010
  Serious: No
  Sender: FDA-Public Use
  Company Number: 2007PV029004

PATIENT
  Age: 63 Year
  Sex: Female
  Weight: 84.369 kg

DRUGS (3)
  1. BYETTA [Suspect]
     Indication: DIABETES MELLITUS NON-INSULIN-DEPENDENT
     Dosage: 10 MCG;BID;SC ; 10 MCG;BID;SC ; 5 MCG;BID;SC
     Route: 059
     Dates: start: 20061126, end: 20061225
  2. BYETTA [Suspect]
     Indication: DIABETES MELLITUS NON-INSULIN-DEPENDENT
     Dosage: 10 MCG;BID;SC ; 10 MCG;BID;SC ; 5 MCG;BID;SC
     Route: 059
     Dates: start: 20061226, end: 20070117
  3. BYETTA [Suspect]
     Indication: DIABETES MELLITUS NON-INSULIN-DEPENDENT
     Dosage: 10 MCG;BID;SC ; 10 MCG;BID;SC ; 5 MCG;BID;SC
     Route: 059
     Dates: start: 20070124

REACTIONS (5)
  - DECREASED APPETITE [None]
  - EARLY SATIETY [None]
  - INJECTION SITE RASH [None]
  - RASH MACULAR [None]
  - WEIGHT DECREASED [None]
